FAERS Safety Report 5917123-8 (Version None)
Quarter: 2008Q4

REPORT INFORMATION
  Report Type: 
  Country: None (occurrence: None)
  Receive Date: 20081014
  Receipt Date: 20081007
  Transmission Date: 20090506
  Serious: Yes (Death)
  Sender: FDA-Public Use
  Company Number: US-ELI_LILLY_AND_COMPANY-US200810001671

PATIENT
  Age: 56 Year
  Sex: Female

DRUGS (6)
  1. ALIMTA [Suspect]
     Indication: NON-SMALL CELL LUNG CANCER METASTATIC
     Dosage: 500 MG/M2, EVERY 21 DAYS
  2. OXALIPLATIN [Concomitant]
     Indication: NON-SMALL CELL LUNG CANCER METASTATIC
     Dosage: 120 MG/M2, EVERY 21 DAYS
  3. BEVACIZUMAB [Concomitant]
     Indication: NON-SMALL CELL LUNG CANCER METASTATIC
     Dosage: 15 MG/KG, EVERY 21 DAYS
  4. VITAMIN B-12 [Concomitant]
     Dosage: 1000 U, OTHER
     Route: 030
  5. FOLIC ACID [Concomitant]
     Dosage: 1 MG, DAILY (1/D)
  6. DEXAMETHASONE [Concomitant]
     Indication: PREMEDICATION
     Dosage: 4 MG, 2/D DAY BEFORE, DAY OF AND DAY AFTER CHEMOTHERAPY

REACTIONS (2)
  - HAEMOPTYSIS [None]
  - PULMONARY HAEMORRHAGE [None]
